FAERS Safety Report 7389414 (Version 4)
Quarter: 2012Q4

REPORT INFORMATION
  Report Type: 
  Country: US (occurrence: US)
  Receive Date: 20100517
  Receipt Date: 20121107
  Transmission Date: 20130627
  Serious: Yes (Hospitalization, Other)
  Sender: FDA-Public Use
  Company Number: PHEH2010US03440

PATIENT
  Sex: Female

DRUGS (4)
  1. TEGRETOL [Suspect]
     Indication: EPILEPSY
     Dosage: 400 mg, daily
     Dates: start: 20010601
  2. BACLOPHEN [Concomitant]
  3. TOPAMAX [Concomitant]
  4. DEPAKENE [Concomitant]

REACTIONS (73)
  - Toxic epidermal necrolysis [Unknown]
  - Stevens-Johnson syndrome [Unknown]
  - Injury [Unknown]
  - Deformity [Unknown]
  - Pain [Unknown]
  - Disability [Unknown]
  - Mental disorder [Unknown]
  - Anxiety [Unknown]
  - Anhedonia [Unknown]
  - Decreased interest [Unknown]
  - Rash [Unknown]
  - Pruritus [Unknown]
  - Skin discolouration [Unknown]
  - Skin exfoliation [Unknown]
  - Alopecia [Unknown]
  - Nail disorder [Unknown]
  - Pigmentation disorder [Unknown]
  - Urticaria [Unknown]
  - Swelling [Unknown]
  - Skin lesion [Unknown]
  - Skin burning sensation [Unknown]
  - Mucous membrane disorder [Unknown]
  - Scar [Unknown]
  - Blindness [Unknown]
  - Internal injury [Unknown]
  - Hypersensitivity [Unknown]
  - Necrosis [Unknown]
  - Lip swelling [Unknown]
  - Eye swelling [Unknown]
  - Pyrexia [Unknown]
  - Viral infection [Unknown]
  - Tachycardia [Unknown]
  - Dyspnoea [Unknown]
  - Erythema multiforme [Unknown]
  - Dermatitis bullous [Unknown]
  - Mouth ulceration [Unknown]
  - Hypotension [Unknown]
  - Anisometropia [Unknown]
  - Dry eye [Unknown]
  - Lower respiratory tract infection [Unknown]
  - Respiratory distress [Unknown]
  - Lung infiltration [Unknown]
  - Epistaxis [Unknown]
  - Oesophagitis [Unknown]
  - Gastroenteritis [Unknown]
  - Dysphagia [Unknown]
  - Pectus carinatum [Unknown]
  - Sinusitis [Unknown]
  - Pneumonia [Unknown]
  - Bronchitis [Unknown]
  - Osteoporosis [Unknown]
  - Decubitus ulcer [Unknown]
  - Infected skin ulcer [Unknown]
  - Ear infection [Unknown]
  - Osteomyelitis [Unknown]
  - Sepsis [Unknown]
  - Erythema [Unknown]
  - Bronchial wall thickening [Unknown]
  - Femur fracture [Unknown]
  - Leukocytosis [Unknown]
  - Clostridium difficile infection [Unknown]
  - Cellulitis [Unknown]
  - Muscle spasticity [Unknown]
  - Staphylococcal infection [Unknown]
  - Asthma [Unknown]
  - Device related infection [Unknown]
  - Eye irritation [Unknown]
  - Optic nerve hypoplasia [Unknown]
  - Wound infection [Unknown]
  - Kyphoscoliosis [Unknown]
  - Joint dislocation [Unknown]
  - Acidosis [Unknown]
  - Rhinorrhoea [Unknown]
